FAERS Safety Report 23872729 (Version 1)
Quarter: 2024Q2

REPORT INFORMATION
  Report Type: Other
  Country: IL (occurrence: None)
  Receive Date: 20240520
  Receipt Date: 20240520
  Transmission Date: 20240716
  Serious: Yes (Hospitalization)
  Sender: FDA-Public Use
  Company Number: IL-ROCHE-3563347

PATIENT
  Age: 86 Year
  Sex: Male

DRUGS (5)
  1. RITUXIMAB [Suspect]
     Active Substance: RITUXIMAB
     Indication: Diffuse large B-cell lymphoma recurrent
     Route: 065
  2. POLATUZUMAB VEDOTIN [Suspect]
     Active Substance: POLATUZUMAB VEDOTIN
     Indication: Diffuse large B-cell lymphoma recurrent
     Route: 065
  3. BENDAMUSTINE [Concomitant]
     Active Substance: BENDAMUSTINE
     Indication: Diffuse large B-cell lymphoma recurrent
     Route: 065
  4. DEXAMETHASONE [Concomitant]
     Active Substance: DEXAMETHASONE
  5. REMDESIVIR [Concomitant]
     Active Substance: REMDESIVIR

REACTIONS (3)
  - COVID-19 [Recovered/Resolved]
  - Humoral immune defect [Recovered/Resolved]
  - Vaccine interaction [Unknown]
